FAERS Safety Report 5040854-1 (Version None)
Quarter: 2006Q3

REPORT INFORMATION
  Report Type: 
  Country: None (occurrence: None)
  Receive Date: 20060703
  Receipt Date: 20060626
  Transmission Date: 20061208
  Serious: Yes (Hospitalization, Other)
  Sender: FDA-Public Use
  Company Number: US-BRISTOL-MYERS SQUIBB COMPANY-13424494

PATIENT
  Age: 53 Year
  Sex: Male
  Weight: 70 kg

DRUGS (12)
  1. ERBITUX [Suspect]
     Indication: TONSIL CANCER
     Route: 042
  2. DECADRON [Concomitant]
     Indication: PREMEDICATION
     Route: 042
  3. DECADRON [Concomitant]
     Route: 048
     Dates: start: 20060625, end: 20060626
  4. BENADRYL [Concomitant]
     Indication: PREMEDICATION
     Route: 042
  5. TYLENOL (CAPLET) [Concomitant]
     Indication: PREMEDICATION
     Route: 048
  6. PREDNISONE [Concomitant]
  7. PAIN MEDICATIONS [Concomitant]
  8. INHALERS [Concomitant]
  9. TOPROL-XL [Concomitant]
  10. XANAX [Concomitant]
  11. SPIRONOLACTONE [Concomitant]
  12. AMITRIPTYLINE HCL [Concomitant]

REACTIONS (2)
  - COMA [None]
  - DYSPNOEA [None]
